FAERS Safety Report 9173470 (Version 1)
Quarter: 2013Q1

REPORT INFORMATION
  Report Type: Spontaneous
  Country: GB (occurrence: None)
  Receive Date: 20130314
  Receipt Date: 20130314
  Transmission Date: 20140127
  Serious: Yes (Other)
  Sender: FDA-Public Use
  Company Number: 2013/043

PATIENT
  Age: 70 Year
  Sex: Female
  Weight: 58 kg

DRUGS (7)
  1. AMLODIPINE (NO PREF. NAME) 5 MG [Suspect]
     Indication: HYPERTENSION
     Route: 048
     Dates: start: 201108, end: 20130131
  2. QUINEINE BISULPHATE 300 MG [Concomitant]
  3. LANSOPRAZOLE 15 MG 3T3 [Concomitant]
  4. ATENOLOL [Concomitant]
  5. RAMIPRIL [Concomitant]
  6. SIMVASTATIN (NO. PREF NAME) [Concomitant]
  7. LEVOTHYROXINE (NO. PREF NAME) [Concomitant]

REACTIONS (5)
  - Gingival hyperplasia [None]
  - Malaise [None]
  - Headache [None]
  - Lethargy [None]
  - Withdrawal syndrome [None]
